FAERS Safety Report 6120440-2 (Version None)
Quarter: 2009Q1

REPORT INFORMATION
  Report Type: 
  Country: None (occurrence: None)
  Receive Date: 20090317
  Receipt Date: 20090311
  Transmission Date: 20090719
  Serious: Yes (Other)
  Sender: FDA-Public Use
  Company Number: US-BAYER-200913481NA

PATIENT
  Age: 42 Year
  Sex: Female
  Weight: 83 kg

DRUGS (2)
  1. ULTRAVIST (PHARMACY BULK) [Suspect]
     Indication: COMPUTERISED TOMOGRAM ABDOMEN
     Dosage: TOTAL DAILY DOSE: 150 ML  UNIT DOSE: 500 ML
     Route: 042
     Dates: start: 20090216, end: 20090216
  2. GASTROVIEW 1400 [Concomitant]
     Indication: COMPUTERISED TOMOGRAM ABDOMEN
     Route: 048
     Dates: start: 20090216, end: 20090216

REACTIONS (6)
  - DYSPNOEA [None]
  - HYPERTENSION [None]
  - PALLOR [None]
  - SNEEZING [None]
  - THROAT TIGHTNESS [None]
  - URTICARIA [None]
